FAERS Safety Report 22521380 (Version 1)
Quarter: 2023Q2

REPORT INFORMATION
  Report Type: Spontaneous
  Country: US (occurrence: US)
  Receive Date: 20230605
  Receipt Date: 20230605
  Transmission Date: 20230722
  Serious: No
  Sender: FDA-Public Use
  Company Number: US-PFIZER INC-202300208977

PATIENT
  Age: 71 Year
  Sex: Female
  Weight: 58.51 kg

DRUGS (1)
  1. PAXLOVID [Suspect]
     Active Substance: NIRMATRELVIR\RITONAVIR
     Indication: COVID-19 treatment
     Dosage: [PF-07321332 150 MG]/[RITONAVIR 100 MG]; 2X/DAY (2 IN MORNING, 2 AT NIGHT SAME TIME AT 6:00)
     Dates: start: 20230531

REACTIONS (3)
  - Abdominal discomfort [Not Recovered/Not Resolved]
  - Dyspepsia [Unknown]
  - Incorrect dose administered [Unknown]

NARRATIVE: CASE EVENT DATE: 20230531
